FAERS Safety Report 8534415-7 (Version None)
Quarter: 2012Q3

REPORT INFORMATION
  Report Type: 
  Country: None (occurrence: None)
  Receive Date: 20120724
  Receipt Date: 20120719
  Transmission Date: 20120928
  Serious: Yes (Hospitalization)
  Sender: FDA-Public Use
  Company Number: PHHY2012PL062628

PATIENT
  Age: 16 Year
  Sex: Male

DRUGS (5)
  1. IMIPENEM [Suspect]
  2. MANNITOL [Concomitant]
  3. DOPAMINE HCL [Concomitant]
  4. VANCOMYCIN [Suspect]
  5. FUROSEMIDE [Concomitant]

REACTIONS (8)
  - ASTHENIA [None]
  - BLOOD LACTATE DEHYDROGENASE INCREASED [None]
  - ASPARTATE AMINOTRANSFERASE INCREASED [None]
  - PAIN IN EXTREMITY [None]
  - CLOSTRIDIAL INFECTION [None]
  - POLYURIA [None]
  - BLOOD CREATINE PHOSPHOKINASE INCREASED [None]
  - BLOOD CREATININE INCREASED [None]
